FAERS Safety Report 9726397 (Version 3)
Quarter: 2013Q4

REPORT INFORMATION
  Report Type: Spontaneous
  Country: DE (occurrence: None)
  Receive Date: 20131129
  Receipt Date: 20131211
  Transmission Date: 20140711
  Serious: Yes (Hospitalization)
  Sender: FDA-Public Use
  Company Number: AUR-APL-2013-09829

PATIENT
  Age: 77 Year
  Sex: Female

DRUGS (8)
  1. RAMIPRIL [Suspect]
     Indication: PRODUCT USED FOR UNKNOWN INDICATION
     Route: 048
     Dates: start: 20130321, end: 20130325
  2. MIRTAZAPINE [Suspect]
     Indication: PRODUCT USED FOR UNKNOWN INDICATION
     Route: 048
     Dates: start: 20130313, end: 20130325
  3. VENLAFAXINE HCL [Suspect]
     Indication: PRODUCT USED FOR UNKNOWN INDICATION
     Dosage: 37.5 MG (37.5 MG, 1 IN 1 D), ORAL
     Route: 048
     Dates: start: 20130328, end: 20130401
  4. SEROQUEL [Suspect]
     Indication: PRODUCT USED FOR UNKNOWN INDICATION
     Dosage: 200 MG (200 MG, 1 IN 1 D), ORAL
     Route: 048
     Dates: start: 20130313, end: 20130331
  5. HCT HEXAL (HYDROCHLOROTHIAZIDE) [Concomitant]
  6. ZOPICLONE (ZOPICLONE) [Concomitant]
  7. LORAZEPAM (LORAZEPAM) [Concomitant]
  8. L-THYROXINE (LEVOTHYROXINE) [Concomitant]

REACTIONS (3)
  - Hyponatraemia [None]
  - Gastrointestinal infection [None]
  - Drug interaction [None]
